FAERS Safety Report 8816131 (Version 1)
Quarter: 2012Q4

REPORT INFORMATION
  Report Type: 
  Country: US (occurrence: US)
  Receive Date: 20120929
  Receipt Date: 20120929
  Transmission Date: 20130627
  Serious: No
  Sender: FDA-Public Use
  Company Number: US-009507513-1209USA010678

PATIENT
  Sex: Female
  Weight: 68.27 kg

DRUGS (4)
  1. NUVARING [Suspect]
     Indication: CONTRACEPTION
     Dosage: 1 ring for 3 weeks then a week free break
     Route: 067
     Dates: start: 20120917
  2. PLAN B [Concomitant]
     Dosage: UNK
     Dates: start: 201209
  3. VITAMINS (UNSPECIFIED) [Concomitant]
  4. BIOTIN [Concomitant]

REACTIONS (1)
  - Metrorrhagia [Not Recovered/Not Resolved]
